FAERS Safety Report 14147060 (Version 1)
Quarter: 2017Q4

REPORT INFORMATION
  Report Type: Spontaneous
  Country: US (occurrence: US)
  Receive Date: 20171101
  Receipt Date: 20171101
  Transmission Date: 20180321
  Serious: No
  Sender: FDA-Public Use
  Company Number: US-BAUSCH-BL-2017-022284

PATIENT
  Sex: Female

DRUGS (1)
  1. LOCOID LIPOCREAM [Suspect]
     Active Substance: HYDROCORTISONE BUTYRATE
     Indication: PRODUCT USED FOR UNKNOWN INDICATION
     Dosage: A LONG TIME AGO?INTRAVAGINALLY
     Route: 067

REACTIONS (1)
  - Incorrect route of drug administration [Unknown]
